FAERS Safety Report 7328894-0 (Version None)
Quarter: 2011Q1

REPORT INFORMATION
  Report Type: 
  Country: None (occurrence: None)
  Receive Date: 20110303
  Receipt Date: 20110222
  Transmission Date: 20110831
  Serious: Yes (Other)
  Sender: FDA-Public Use
  Company Number: JP-ROCHE-762764

PATIENT
  Age: 66 Year
  Sex: Female

DRUGS (5)
  1. URSO 250 [Concomitant]
     Route: 048
  2. PEGASYS [Suspect]
     Dosage: DOSE REDUCED.
     Route: 058
     Dates: start: 20110107
  3. COPEGUS [Suspect]
     Indication: HEPATITIS C
     Route: 048
     Dates: start: 20110107
  4. LAC-B [Concomitant]
     Route: 048
  5. PEGASYS [Suspect]
     Indication: HEPATITIS C
     Route: 058
     Dates: start: 20100604, end: 20110107

REACTIONS (1)
  - EPILEPSY [None]
